FAERS Safety Report 8179143-5 (Version None)
Quarter: 2012Q1

REPORT INFORMATION
  Report Type: 
  Country: None (occurrence: None)
  Receive Date: 20120302
  Receipt Date: 20120228
  Transmission Date: 20120608
  Serious: No
  Sender: FDA-Public Use
  Company Number: US-PFIZER INC-2012053020

PATIENT
  Sex: Female
  Weight: 51.701 kg

DRUGS (7)
  1. CYMBALTA [Concomitant]
     Indication: DEPRESSION
  2. LYRICA [Suspect]
     Indication: PAIN
     Dosage: 50 MG, 1X/DAY
     Route: 048
     Dates: start: 20120101, end: 20120214
  3. REQUIP [Concomitant]
     Dosage: 0.5 MG, 1X/DAY
  4. LYRICA [Suspect]
     Dosage: 50 MG, 3X/DAY
     Route: 048
     Dates: start: 20120214
  5. CYMBALTA [Concomitant]
     Indication: PAIN
     Dosage: 60 MG, 1X/DAY
  6. ALPRAZOLAM [Concomitant]
     Indication: ANXIETY
     Dosage: 0.25 MG, 2X/DAY
  7. ACETAMINOPHEN [Concomitant]
     Dosage: 1000 MG, 4X/DAY

REACTIONS (1)
  - PAIN [None]
